FAERS Safety Report 7953031-9 (Version None)
Quarter: 2011Q4

REPORT INFORMATION
  Report Type: 
  Country: None (occurrence: None)
  Receive Date: 20111201
  Receipt Date: 20111123
  Transmission Date: 20120403
  Serious: Yes (Other)
  Sender: FDA-Public Use
  Company Number: PHHY2011PL86319

PATIENT
  Sex: Female
  Weight: 64 kg

DRUGS (2)
  1. SUNITINIB MALATE [Concomitant]
  2. ZOMETA [Suspect]
     Dosage: 4 MG, UNK
     Route: 042
     Dates: start: 20090529, end: 20110605

REACTIONS (1)
  - OSTEONECROSIS OF JAW [None]
